FAERS Safety Report 7199402-2 (Version None)
Quarter: 2010Q4

REPORT INFORMATION
  Report Type: 
  Country: None (occurrence: None)
  Receive Date: 20101223
  Receipt Date: 20101223
  Transmission Date: 20110411
  Serious: Yes (Other)
  Sender: FDA-Public Use
  Company Number: None

PATIENT
  Age: 88 Year
  Sex: Female
  Weight: 61.6892 kg

DRUGS (1)
  1. VITAMIN D [Suspect]
     Indication: HYPOVITAMINOSIS
     Dosage: 50,000 U Q.WK 12 QUANTITY
     Dates: start: 20100527

REACTIONS (1)
  - PAIN IN EXTREMITY [None]
